FAERS Safety Report 18436664 (Version 1)
Quarter: 2020Q4

REPORT INFORMATION
  Report Type: Spontaneous
  Country: US (occurrence: US)
  Receive Date: 20201028
  Receipt Date: 20201028
  Transmission Date: 20210114
  Serious: Yes (Other)
  Sender: FDA-Public Use
  Company Number: None

PATIENT
  Age: 56 Year
  Sex: Female
  Weight: 95.25 kg

DRUGS (22)
  1. ALOXI [Concomitant]
     Active Substance: PALONOSETRON HYDROCHLORIDE
  2. ATIVAN [Concomitant]
     Active Substance: LORAZEPAM
  3. FAMOTIDINE. [Concomitant]
     Active Substance: FAMOTIDINE
  4. HYDROCODONE [Concomitant]
     Active Substance: HYDROCODONE
  5. SANCUSO [Suspect]
     Active Substance: GRANISETRON
     Indication: VOMITING
     Dosage: ?          OTHER FREQUENCY:WEEKLY;?
     Route: 062
     Dates: start: 20200909, end: 20201028
  6. ALTEPLASE. [Concomitant]
     Active Substance: ALTEPLASE
  7. ATROPINE. [Concomitant]
     Active Substance: ATROPINE
  8. CAMPTOSAR [Concomitant]
     Active Substance: IRINOTECAN HYDROCHLORIDE
  9. ESOMEPRAZOLE. [Concomitant]
     Active Substance: ESOMEPRAZOLE MAGNESIUM
  10. HEPARIN [Concomitant]
     Active Substance: HEPARIN SODIUM
  11. SANCUSO [Suspect]
     Active Substance: GRANISETRON
     Indication: NAUSEA
     Dosage: ?          OTHER FREQUENCY:WEEKLY;?
     Route: 062
     Dates: start: 20200909, end: 20201028
  12. LIDOCAINE PRILOCAINE [Concomitant]
     Active Substance: LIDOCAINE\PRILOCAINE
  13. XARELTO [Concomitant]
     Active Substance: RIVAROXABAN
  14. ALEVE [Concomitant]
     Active Substance: NAPROXEN SODIUM
  15. FLUOROURACIL. [Concomitant]
     Active Substance: FLUOROURACIL
  16. LORATADINE. [Concomitant]
     Active Substance: LORATADINE
  17. DEXAMETHASONE. [Concomitant]
     Active Substance: DEXAMETHASONE
  18. NEULASTA [Concomitant]
     Active Substance: PEGFILGRASTIM
  19. XANAX [Concomitant]
     Active Substance: ALPRAZOLAM
  20. FOSAPREPITANT [Concomitant]
     Active Substance: FOSAPREPITANT
  21. PROCHLORPERAZINE. [Concomitant]
     Active Substance: PROCHLORPERAZINE
  22. PROMETHAZINE [Concomitant]
     Active Substance: PROMETHAZINE HYDROCHLORIDE

REACTIONS (1)
  - Disease progression [None]

NARRATIVE: CASE EVENT DATE: 20201028
